FAERS Safety Report 9028394 (Version 3)
Quarter: 2014Q2

REPORT INFORMATION
  Report Type: Spontaneous
  Country: US (occurrence: US)
  Receive Date: 20130124
  Receipt Date: 20140514
  Transmission Date: 20141212
  Serious: Yes (Hospitalization)
  Sender: FDA-Public Use
  Company Number: US-BAYER-2013-008146

PATIENT
  Age: 45 Year
  Sex: Female
  Weight: 68 kg

DRUGS (11)
  1. YASMIN [Suspect]
     Dosage: UNK
     Dates: start: 20071127, end: 20101129
  2. ALEVE [Concomitant]
     Dosage: 50 UNK, UNK
     Dates: start: 20101217
  3. LOPRESSOR [Concomitant]
     Dosage: 50 MG, BID
     Route: 048
     Dates: start: 20101217
  4. K-DUR [Concomitant]
     Dosage: 20 MEQ NOW AND DAILY FOR 3 DAYS
     Route: 048
     Dates: start: 20101217
  5. FERROUS SULFATE [Concomitant]
     Dosage: 325 MG, TID
     Route: 048
     Dates: start: 20101217
  6. PROZAC [Concomitant]
     Dosage: UNK
     Dates: start: 20101219
  7. BETASERON [Concomitant]
     Dosage: UNK
     Dates: start: 20101219
  8. NORVASC [Concomitant]
  9. ASPIRIN [Concomitant]
  10. CRESTOR [Concomitant]
  11. TYLENOL [Concomitant]

REACTIONS (10)
  - Cerebrovascular accident [Recovered/Resolved]
  - Injury [Recovered/Resolved]
  - Emotional distress [None]
  - Asthenia [Recovered/Resolved]
  - Dysarthria [Recovered/Resolved]
  - VIIth nerve paralysis [Recovered/Resolved]
  - Stress [None]
  - Fatigue [None]
  - Vertigo [None]
  - Performance fear [None]
